FAERS Safety Report 4382925-9 (Version None)
Quarter: 2004Q2

REPORT INFORMATION
  Report Type: 
  Country: None (occurrence: None)
  Receive Date: 20040617
  Receipt Date: 20040605
  Transmission Date: 20050107
  Serious: Yes (Death)
  Sender: FDA-Public Use
  Company Number: 2004025153

PATIENT
  Age: 77 Year
  Sex: Male

DRUGS (14)
  1. GEODON [Suspect]
     Indication: AGITATION
     Dosage: 10 MG (10 MG, ONE DOSE) INTRAMUSCULAR
     Route: 030
     Dates: start: 20040101, end: 20040101
  2. DIGOXIN [Concomitant]
  3. WARFARIN SODIUM [Concomitant]
  4. THIAMINE (THIAMINE) [Concomitant]
  5. FOLIC ACID [Concomitant]
  6. DONEPEZIL HCL [Concomitant]
  7. POTASSIUM CHLORIDE [Concomitant]
  8. ATORVASTATIN (ATORVASTATIN) [Concomitant]
  9. FUROSEMIDE [Concomitant]
  10. CARVEDILOL [Concomitant]
  11. COMBIVENT [Concomitant]
  12. VALPROATE SODIUM [Concomitant]
  13. MIRTAZAPINE [Concomitant]
  14. QUETIAPINE FUMARATE (QUETIAPINE FUMARATE) [Concomitant]

REACTIONS (5)
  - APNOEA [None]
  - COMA [None]
  - CORONARY ARTERY EMBOLISM [None]
  - DYSPNOEA [None]
  - PULSE ABSENT [None]
